FAERS Safety Report 5842136-4 (Version None)
Quarter: 2008Q3

REPORT INFORMATION
  Report Type: 
  Country: None (occurrence: None)
  Receive Date: 20080812
  Receipt Date: 20080807
  Transmission Date: 20090109
  Serious: Yes (Other)
  Sender: FDA-Public Use
  Company Number: US-AVENTIS-200718912US

PATIENT
  Age: 69 Year
  Sex: Female

DRUGS (13)
  1. LANTUS [Suspect]
     Dates: start: 20071102
  2. OPTICLIK (INSULIN INJECTION PEN) [Suspect]
     Dates: start: 20070101
  3. NOVOLOG [Concomitant]
     Dosage: DOSE: UNK
  4. ATENOLOL [Concomitant]
  5. ZOCOR [Concomitant]
     Dosage: DOSE: UNK
  6. SYNTHROID [Concomitant]
     Dosage: DOSE: UNK
  7. FUROSEMIDE [Concomitant]
     Dosage: DOSE: UNK
  8. HYZAAR [Concomitant]
     Dosage: DOSE: UNK
  9. ANTIDEPRESSANTS [Concomitant]
     Dosage: DOSE: UNK
  10. FISH OIL [Concomitant]
     Dosage: DOSE: UNK
  11. CALCIUM [Concomitant]
     Dosage: DOSE: UNK
  12. VITAMIN B                          /90046501/ [Concomitant]
     Dosage: DOSE: UNK
  13. VITAMIN B-12 [Concomitant]
     Dosage: DOSE: UNK
     Route: 051

REACTIONS (7)
  - ACCIDENTAL OVERDOSE [None]
  - BLOOD GLUCOSE INCREASED [None]
  - CONVERSION DISORDER [None]
  - HYPOGLYCAEMIC SEIZURE [None]
  - HYPOGLYCAEMIC UNCONSCIOUSNESS [None]
  - PANIC ATTACK [None]
  - TREMOR [None]
